FAERS Safety Report 11598217 (Version 1)
Quarter: 2015Q4

REPORT INFORMATION
  Report Type: Spontaneous
  Country: US (occurrence: US)
  Receive Date: 20151006
  Receipt Date: 20151006
  Transmission Date: 20160304
  Serious: No
  Sender: FDA-Public Use
  Company Number: US-ROCHE-1598292

PATIENT
  Sex: Female

DRUGS (1)
  1. ERIVEDGE [Suspect]
     Active Substance: VISMODEGIB
     Indication: SKIN CANCER
     Route: 065

REACTIONS (5)
  - Contusion [Unknown]
  - Pain of skin [Unknown]
  - Hyperaesthesia [Unknown]
  - Alopecia [Unknown]
  - Skin burning sensation [Unknown]
